FAERS Safety Report 6438773-9 (Version None)
Quarter: 2009Q4

REPORT INFORMATION
  Report Type: 
  Country: None (occurrence: None)
  Receive Date: 20091113
  Receipt Date: 20091102
  Transmission Date: 20100525
  Serious: No
  Sender: FDA-Public Use
  Company Number: US-JNJFOC-20091101296

PATIENT
  Sex: Female
  Weight: 67.13 kg

DRUGS (2)
  1. DURAGESIC-100 [Suspect]
     Indication: ABDOMINAL PAIN UPPER
     Route: 062
     Dates: start: 20091026
  2. UNKNOWN MEDICATION [Concomitant]
     Indication: DIARRHOEA
     Route: 065

REACTIONS (4)
  - HYPERAESTHESIA [None]
  - INAPPROPRIATE SCHEDULE OF DRUG ADMINISTRATION [None]
  - PAIN OF SKIN [None]
  - PRODUCT ADHESION ISSUE [None]
